FAERS Safety Report 16004646 (Version 1)
Quarter: 2019Q1

REPORT INFORMATION
  Report Type: Spontaneous
  Country: US (occurrence: US)
  Receive Date: 20190225
  Receipt Date: 20190225
  Transmission Date: 20190418
  Serious: Yes (Death)
  Sender: FDA-Public Use
  Company Number: None

PATIENT
  Age: 30 Year
  Sex: Female

DRUGS (3)
  1. COLISTIMETHATE 150MG [Suspect]
     Active Substance: COLISTIMETHATE SODIUM
     Route: 055
     Dates: start: 20170404
  2. C- COLISTIMETHATE 75MG [Concomitant]
     Dates: start: 20170404
  3. SODIUM CHLORIDE 23.4% 30ML [Suspect]
     Active Substance: SODIUM CHLORIDE
     Route: 055
     Dates: start: 20170404

REACTIONS (1)
  - Death [None]
